FAERS Safety Report 6183595-X (Version None)
Quarter: 2009Q2

REPORT INFORMATION
  Report Type: 
  Country: None (occurrence: None)
  Receive Date: 20090508
  Receipt Date: 20090507
  Transmission Date: 20091009
  Serious: Yes (Other)
  Sender: FDA-Public Use
  Company Number: US-PFIZER INC-2009191850

PATIENT
  Sex: Male
  Weight: 104.31 kg

DRUGS (3)
  1. CELEBREX [Suspect]
     Indication: BACK DISORDER
     Dates: start: 20080101, end: 20080101
  2. LIPITOR [Concomitant]
     Dosage: UNK
  3. LANOXIN [Concomitant]
     Dosage: UNK

REACTIONS (2)
  - BLOOD TRIGLYCERIDES INCREASED [None]
  - PROSTATIC HAEMORRHAGE [None]
